FAERS Safety Report 20819216 (Version 3)
Quarter: 2022Q2

REPORT INFORMATION
  Report Type: Report from Study
  Country: CA (occurrence: CA)
  Receive Date: 20220512
  Receipt Date: 20220616
  Transmission Date: 20220720
  Serious: Yes (Death)
  Sender: FDA-Public Use
  Company Number: CA-BAYER-2022A067332

PATIENT
  Sex: Male

DRUGS (2)
  1. EYLEA [Suspect]
     Active Substance: AFLIBERCEPT
     Indication: Product used for unknown indication
     Dosage: 2MG/0.05ML, DOSAGE, FREQUENCY AND TOTAL NUMBER OF INJECTIONS UNKNOWN; SOLUTION FOR INJECTION IN PFS
     Route: 031
     Dates: start: 20161116
  2. EYLEA [Suspect]
     Active Substance: AFLIBERCEPT
     Dosage: UNK; SOLUTION FOR INJECTION IN PFS
     Dates: start: 20170911, end: 20180108

REACTIONS (1)
  - Ill-defined disorder [Fatal]
